FAERS Safety Report 4546436-X (Version None)
Quarter: 2005Q1

REPORT INFORMATION
  Report Type: 
  Country: None (occurrence: None)
  Receive Date: 20050103
  Receipt Date: 20041214
  Transmission Date: 20050727
  Serious: Yes (Hospitalization)
  Sender: FDA-Public Use
  Company Number: DE_041214856

PATIENT
  Age: 85 Year
  Sex: Female
  Weight: 60 kg

DRUGS (8)
  1. YENTREVE (DULOXETINE HYDROCHLORIDE) [Suspect]
     Indication: URINARY INCONTINENCE
     Dates: start: 20041122, end: 20041124
  2. MADOPAR [Concomitant]
  3. ISOKET [Concomitant]
  4. RETARD (ISOSORBIDE DINITRATE) [Concomitant]
  5. TILDINE HYDROCHLORIDE [Concomitant]
  6. NOVAMINSULFON-RATIOPHARM (METAMIZOLE SODIUM) [Concomitant]
  7. VALORON N [Concomitant]
  8. OMEPRAZOL ^STADA^ (OMEPRAZOLE RATIOPHARM) [Concomitant]

REACTIONS (14)
  - ANOREXIA [None]
  - BLOOD ALBUMIN DECREASED [None]
  - C-REACTIVE PROTEIN INCREASED [None]
  - CHRONIC LYMPHOCYTIC LEUKAEMIA [None]
  - DEHYDRATION [None]
  - ESCHERICHIA URINARY TRACT INFECTION [None]
  - HYPOKINESIA [None]
  - LABORATORY TEST ABNORMAL [None]
  - NAUSEA [None]
  - PNEUMONIA [None]
  - RED BLOOD CELL SEDIMENTATION RATE INCREASED [None]
  - URINARY RETENTION [None]
  - VOMITING [None]
  - WHITE BLOOD CELL COUNT INCREASED [None]
